FAERS Safety Report 10019328 (Version 2)
Quarter: 2014Q1

REPORT INFORMATION
  Report Type: Report from Study
  Country: US (occurrence: US)
  Receive Date: 20140318
  Receipt Date: 20140328
  Transmission Date: 20141002
  Serious: Yes (Other)
  Sender: FDA-Public Use
  Company Number: US-ABBVIE-14P-163-1213262-00

PATIENT
  Sex: Female

DRUGS (1)
  1. HUMIRA [Suspect]
     Indication: CROHN^S DISEASE
     Dates: start: 2009

REACTIONS (3)
  - Abortion spontaneous [Unknown]
  - Anovulatory cycle [Not Recovered/Not Resolved]
  - Infertility [Not Recovered/Not Resolved]
